FAERS Safety Report 11554460 (Version 1)
Quarter: 2015Q3

REPORT INFORMATION
  Report Type: Spontaneous
  Country: US (occurrence: US)
  Receive Date: 20150925
  Receipt Date: 20150925
  Transmission Date: 20151125
  Serious: No
  Sender: FDA-Public Use
  Company Number: US-BAYER-2015-424262

PATIENT
  Age: 86 Year
  Sex: Female
  Weight: 71.2 kg

DRUGS (1)
  1. MIRALAX [Suspect]
     Active Substance: POLYETHYLENE GLYCOL 3350
     Indication: CONSTIPATION
     Dosage: 1 DF,QD
     Route: 048

REACTIONS (2)
  - Contraindicated drug administered [None]
  - Product use issue [None]
